FAERS Safety Report 4593911-8 (Version None)
Quarter: 2005Q1

REPORT INFORMATION
  Report Type: 
  Country: None (occurrence: None)
  Receive Date: 20050301
  Receipt Date: 20021127
  Transmission Date: 20050727
  Serious: Yes (Hospitalization, Disabling, Other)
  Sender: FDA-Public Use
  Company Number: US-MERCK-0212USA00306

PATIENT
  Age: 62 Year
  Sex: Male

DRUGS (95)
  1. GLUCOPHAGE [Concomitant]
     Route: 065
     Dates: start: 20000101, end: 20020111
  2. GLUCOPHAGE [Concomitant]
     Route: 065
     Dates: start: 20020101
  3. COUMADIN [Concomitant]
     Route: 048
     Dates: start: 20001108, end: 20010926
  4. DIOVAN [Concomitant]
     Route: 065
  5. DIOVAN [Concomitant]
     Route: 065
     Dates: start: 20010725
  6. RANITIDINE-BC [Concomitant]
     Route: 065
     Dates: start: 19990510
  7. RADIOGRAPHIC CONTRAST MEDIUM (UNSPECIFIED) [Suspect]
     Route: 065
     Dates: start: 20010109, end: 20010109
  8. CARDURA [Concomitant]
     Route: 065
     Dates: start: 19940626, end: 19941129
  9. CARDURA [Concomitant]
     Route: 065
     Dates: start: 19991130
  10. CARDURA [Concomitant]
     Route: 065
     Dates: start: 19980509
  11. NITROGLYCERIN [Concomitant]
     Route: 065
  12. CARDIZEM [Concomitant]
     Route: 065
     Dates: start: 20000726, end: 20001001
  13. CARDIZEM [Concomitant]
     Route: 065
     Dates: start: 20010226
  14. CARDIZEM [Concomitant]
     Route: 048
     Dates: start: 20001101
  15. CARDIZEM [Concomitant]
     Route: 065
     Dates: start: 19961218
  16. CARDIZEM [Concomitant]
     Route: 065
     Dates: start: 19970820
  17. CARDIZEM [Concomitant]
     Route: 065
  18. LANOXIN [Concomitant]
     Route: 065
     Dates: end: 19991029
  19. ECOTRIN [Concomitant]
     Route: 065
  20. LOTREL [Concomitant]
     Route: 065
  21. TOPROL-XL [Concomitant]
     Route: 065
     Dates: end: 19991027
  22. AMOXIL [Concomitant]
     Route: 065
     Dates: start: 20001204, end: 20001214
  23. AMOXIL [Concomitant]
     Route: 065
     Dates: start: 20010228
  24. AMOXIL [Concomitant]
     Route: 065
     Dates: start: 20001220, end: 20001230
  25. AMOXIL [Concomitant]
     Route: 065
     Dates: start: 20020107
  26. DILTIAZEM HYDROCHLORIDE [Concomitant]
     Route: 065
     Dates: start: 19970820
  27. NAPROXEN [Concomitant]
     Route: 065
  28. NIACIN [Concomitant]
     Route: 065
     Dates: start: 19980724, end: 19980911
  29. NIACIN [Concomitant]
     Route: 065
     Dates: start: 19980717, end: 19980723
  30. MEVACOR [Concomitant]
     Route: 065
     Dates: start: 19981201, end: 19990113
  31. MEVACOR [Concomitant]
     Route: 065
     Dates: start: 19990326
  32. MEVACOR [Concomitant]
     Route: 048
     Dates: start: 19990929
  33. LOPRESSOR [Concomitant]
     Route: 065
     Dates: start: 19990510
  34. FELODIPINE [Concomitant]
     Route: 065
     Dates: start: 19990318
  35. NEURONTIN [Concomitant]
     Route: 065
     Dates: start: 20000622
  36. LORAZEPAM [Concomitant]
     Route: 065
     Dates: start: 20000718
  37. NADOLOL [Concomitant]
     Route: 065
     Dates: start: 20000101, end: 20000726
  38. MYCELEX [Concomitant]
     Route: 065
     Dates: start: 20010909
  39. CIMETIDINE [Concomitant]
     Route: 065
     Dates: start: 19980122, end: 19990819
  40. TETANUS TOXOID [Concomitant]
     Route: 030
     Dates: start: 19980417
  41. PRILOSEC [Concomitant]
     Route: 065
     Dates: start: 19990113
  42. ROBAXIN [Concomitant]
     Route: 048
     Dates: start: 19980628
  43. DIGOXIN [Concomitant]
     Route: 065
     Dates: start: 19980122
  44. QUINAMM [Concomitant]
     Route: 065
     Dates: start: 19980223
  45. CORDARONE [Suspect]
     Route: 065
     Dates: start: 19991101, end: 19991201
  46. CORDARONE [Suspect]
     Route: 065
     Dates: start: 19991105
  47. CORDARONE [Suspect]
     Route: 065
     Dates: start: 20010228
  48. CORDARONE [Suspect]
     Route: 065
     Dates: start: 20010228
  49. CORDARONE [Suspect]
     Route: 065
     Dates: start: 20000101
  50. CORDARONE [Suspect]
     Route: 065
     Dates: start: 20000101
  51. CORDARONE [Suspect]
     Route: 065
     Dates: start: 20010418
  52. CORDARONE [Suspect]
     Route: 065
     Dates: start: 19991101, end: 19991201
  53. CORDARONE [Suspect]
     Route: 065
     Dates: start: 19991201
  54. CORDARONE [Suspect]
     Route: 065
     Dates: start: 20010701
  55. ZOCOR [Suspect]
     Route: 048
     Dates: start: 19980501, end: 19980714
  56. ZOCOR [Suspect]
     Route: 048
     Dates: start: 19980910, end: 19990520
  57. CORDARONE [Suspect]
     Route: 048
     Dates: start: 20010926, end: 20020111
  58. ZOCOR [Suspect]
     Route: 048
     Dates: start: 19991029, end: 20010926
  59. DIOVAN HCT [Concomitant]
     Route: 065
  60. DIOVAN HCT [Concomitant]
     Route: 065
     Dates: start: 19991109
  61. GEMFIBROZIL [Concomitant]
     Route: 065
     Dates: start: 19990401
  62. LIPITOR [Concomitant]
     Route: 065
  63. LIPITOR [Concomitant]
     Route: 048
  64. KEFZOL [Concomitant]
     Route: 065
     Dates: start: 19980729
  65. KEFZOL [Concomitant]
     Route: 065
     Dates: start: 19981201
  66. KEFLEX [Concomitant]
     Route: 065
     Dates: start: 19980729
  67. KEFLEX [Concomitant]
     Route: 065
     Dates: start: 19981201
  68. KEFLEX [Concomitant]
     Route: 065
     Dates: start: 20000801
  69. KEFLEX [Concomitant]
     Route: 065
     Dates: start: 20000830
  70. CORTISPORIN OINTMENT [Concomitant]
     Route: 001
     Dates: start: 19980729
  71. CORTISPORIN OINTMENT [Concomitant]
     Route: 001
     Dates: start: 19990119
  72. CORTISPORIN OINTMENT [Concomitant]
     Route: 001
     Dates: start: 19990907
  73. LINCOCIN [Concomitant]
     Route: 065
     Dates: start: 19981104
  74. LINCOCIN [Concomitant]
     Route: 065
     Dates: start: 19991227
  75. LINCOCIN [Concomitant]
     Route: 065
     Dates: start: 20000106
  76. LINCOCIN [Concomitant]
     Route: 065
     Dates: start: 20000830
  77. LINCOCIN [Concomitant]
     Route: 065
     Dates: start: 20001009
  78. ERYTHROMYCIN [Concomitant]
     Route: 065
     Dates: start: 19981104
  79. ERYTHROMYCIN [Concomitant]
     Route: 065
     Dates: start: 19991227
  80. ERYTHROMYCIN [Concomitant]
     Route: 065
     Dates: start: 20000106
  81. HYCODAN [Concomitant]
     Route: 065
     Dates: start: 19991227
  82. HYCODAN [Concomitant]
     Route: 065
     Dates: start: 19981104
  83. SOLU-MEDROL [Concomitant]
     Route: 065
     Dates: start: 19990119
  84. SOLU-MEDROL [Concomitant]
     Route: 030
     Dates: start: 20010831
  85. CEFTIN [Concomitant]
     Route: 065
     Dates: start: 19990919
  86. VANCENASE [Concomitant]
     Route: 055
     Dates: start: 19990119
  87. NORVASC [Concomitant]
     Route: 048
  88. ZANTAC [Concomitant]
     Route: 065
  89. CEFZIL [Concomitant]
     Route: 048
  90. ALLEGRA-D [Concomitant]
     Route: 048
     Dates: start: 20010831
  91. Z-PAK [Concomitant]
     Route: 065
     Dates: start: 20011213
  92. ZYRTEC [Concomitant]
     Route: 065
  93. TRI-NASAL [Concomitant]
     Route: 065
     Dates: start: 20011213
  94. INFLUENZA VIRUS VACCINE (UNSPECIFIED) [Concomitant]
     Route: 065
     Dates: start: 20011102
  95. METFORMIN [Concomitant]
     Route: 065
     Dates: start: 19990101

REACTIONS (51)
  - ADENOMA BENIGN [None]
  - ANXIETY [None]
  - AORTIC VALVE SCLEROSIS [None]
  - ATRIAL FIBRILLATION [None]
  - ATRIAL FLUTTER [None]
  - BENIGN PROSTATIC HYPERPLASIA [None]
  - BILIRUBIN CONJUGATED INCREASED [None]
  - BLADDER DISORDER [None]
  - BLOOD BILIRUBIN INCREASED [None]
  - BRADYCARDIA [None]
  - BRONCHITIS [None]
  - CANDIDIASIS [None]
  - CARDIAC DISORDER [None]
  - CAROTID ARTERY DISEASE [None]
  - CHEST PAIN [None]
  - COLONIC POLYP [None]
  - COUGH [None]
  - DIABETES MELLITUS NON-INSULIN-DEPENDENT [None]
  - DIABETIC RETINOPATHY [None]
  - DIZZINESS [None]
  - DRUG INTERACTION [None]
  - DYSPEPSIA [None]
  - DYSPNOEA [None]
  - EAR DISORDER [None]
  - EXTERNAL EAR LESION EXCISION [None]
  - EYE HAEMORRHAGE [None]
  - FLUSHING [None]
  - GROIN PAIN [None]
  - INSOMNIA [None]
  - INTERVERTEBRAL DISC DISPLACEMENT [None]
  - MITRAL VALVE INCOMPETENCE [None]
  - MUSCLE SPASMS [None]
  - MYALGIA [None]
  - OTITIS EXTERNA [None]
  - PAIN IN EXTREMITY [None]
  - PELVIC PAIN [None]
  - PHARYNGITIS [None]
  - PIGMENTED NAEVUS [None]
  - RENAL ARTERY STENOSIS [None]
  - RENAL FAILURE ACUTE [None]
  - RHABDOMYOLYSIS [None]
  - RHINITIS ALLERGIC [None]
  - SENSATION OF FOREIGN BODY [None]
  - SICK SINUS SYNDROME [None]
  - SINUSITIS [None]
  - SWEAT DISCOLOURATION [None]
  - TONGUE DISORDER [None]
  - TRICUSPID VALVE INCOMPETENCE [None]
  - UPPER RESPIRATORY TRACT INFECTION [None]
  - VIRAL INFECTION [None]
  - VISUAL ACUITY REDUCED [None]
